FAERS Safety Report 11148450 (Version 2)
Quarter: 2015Q4

REPORT INFORMATION
  Report Type: Spontaneous
  Country: US (occurrence: US)
  Receive Date: 20150529
  Receipt Date: 20151020
  Transmission Date: 20160304
  Serious: No
  Sender: FDA-Public Use
  Company Number: US-B.I. PHARMACEUTICALS,INC./RIDGEFIELD-2015-BI-26510BP

PATIENT
  Sex: Male

DRUGS (1)
  1. SPIRIVA [Suspect]
     Active Substance: TIOTROPIUM BROMIDE MONOHYDRATE
     Indication: PRODUCT USED FOR UNKNOWN INDICATION
     Route: 055

REACTIONS (10)
  - Malaise [Unknown]
  - Feeling jittery [Unknown]
  - Fatigue [Unknown]
  - Heart rate increased [Unknown]
  - Fear [Unknown]
  - Depressed mood [Unknown]
  - Psychiatric symptom [Unknown]
  - Asthenia [Unknown]
  - Pallor [Unknown]
  - Nausea [Unknown]
